FAERS Safety Report 5407742-X (Version None)
Quarter: 2007Q3

REPORT INFORMATION
  Report Type: 
  Country: None (occurrence: None)
  Receive Date: 20070713
  Receipt Date: 20070504
  Transmission Date: 20080115
  Serious: Yes (Hospitalization, Other)
  Sender: FDA-Public Use
  Company Number: US-JNJFOC-20060505967

PATIENT
  Age: 30 Year
  Sex: Female
  Weight: 111.5849 kg

DRUGS (3)
  1. ORTHO EVRA [Suspect]
     Indication: CONTRACEPTION
     Dosage: TRANSDERMAL
     Route: 062
     Dates: start: 20021001, end: 20030501
  2. YASMIN [Suspect]
     Indication: MENORRHAGIA
     Dosage: ORAL
     Route: 048
     Dates: start: 20030519
  3. IRON (IRON) [Concomitant]

REACTIONS (4)
  - DEEP VEIN THROMBOSIS [None]
  - DEPRESSION [None]
  - METRORRHAGIA [None]
  - PULMONARY EMBOLISM [None]
